FAERS Safety Report 21324878 (Version 3)
Quarter: 2022Q4

REPORT INFORMATION
  Report Type: Spontaneous
  Country: GB (occurrence: GB)
  Receive Date: 20220912
  Receipt Date: 20221130
  Transmission Date: 20230113
  Serious: Yes (Hospitalization)
  Sender: FDA-Public Use
  Company Number: GB-VERTEX PHARMACEUTICALS-2022-013341

PATIENT
  Sex: Male

DRUGS (31)
  1. ELEXACAFTOR\IVACAFTOR\TEZACAFTOR [Suspect]
     Active Substance: ELEXACAFTOR\IVACAFTOR\TEZACAFTOR
     Indication: Cystic fibrosis
     Dosage: IVACAFTOR 75 MG/TEZACAFTOR 50 MG/ELEXACAFTOR 100 MG; 2 TABS IN AM
     Route: 048
  2. KALYDECO [Suspect]
     Active Substance: IVACAFTOR
     Indication: Cystic fibrosis
     Dosage: UNK FREQ
     Route: 048
  3. PULMOZYME [Concomitant]
     Active Substance: DORNASE ALFA
     Route: 055
  4. TOBRAMYCIN [Concomitant]
     Active Substance: TOBRAMYCIN
  5. CALCIUM CARBONATE\CHOLECALCIFEROL [Concomitant]
     Active Substance: CALCIUM CARBONATE\CHOLECALCIFEROL
  6. AZITHROMYCIN [Concomitant]
     Active Substance: AZITHROMYCIN
  7. BISOPROLOL [Concomitant]
     Active Substance: BISOPROLOL
  8. RENACET [Concomitant]
  9. CETIRIZINE [Concomitant]
     Active Substance: CETIRIZINE HYDROCHLORIDE
  10. CREON [Concomitant]
     Active Substance: PANCRELIPASE AMYLASE\PANCRELIPASE LIPASE\PANCRELIPASE PROTEASE
  11. CYCLIZINE [Concomitant]
     Active Substance: CYCLIZINE
  12. DORNASE ALFA [Concomitant]
     Active Substance: DORNASE ALFA
     Route: 055
  13. DOXAZOSIN [Concomitant]
     Active Substance: DOXAZOSIN MESYLATE
  14. BUDESONIDE\FORMOTEROL [Concomitant]
     Active Substance: BUDESONIDE\FORMOTEROL
  15. FAMOTIDINE [Concomitant]
     Active Substance: FAMOTIDINE
  16. FLUDROCORTISONE [Concomitant]
     Active Substance: FLUDROCORTISONE
  17. FUROSEMIDE [Concomitant]
     Active Substance: FUROSEMIDE
  18. HUMALOG [Concomitant]
     Active Substance: INSULIN LISPRO
  19. HYDRALAZINE [Concomitant]
     Active Substance: HYDRALAZINE HYDROCHLORIDE
  20. LANTUS [Concomitant]
     Active Substance: INSULIN GLARGINE
  21. METOCLOPRAMIDE [Concomitant]
     Active Substance: METOCLOPRAMIDE
  22. MIRTAZAPINE [Concomitant]
     Active Substance: MIRTAZAPINE
  23. MORPHINE [Concomitant]
     Active Substance: MORPHINE
  24. ACETAMINOPHEN [Concomitant]
     Active Substance: ACETAMINOPHEN
  25. PAROXETINE [Concomitant]
     Active Substance: PAROXETINE
  26. PATIROMER [Concomitant]
     Active Substance: PATIROMER
  27. ALBUTEROL [Concomitant]
     Active Substance: ALBUTEROL
     Dosage: MDI
  28. ALBUTEROL [Concomitant]
     Active Substance: ALBUTEROL
     Dosage: UNK
     Route: 055
  29. SODIUM BICARBONATE [Concomitant]
     Active Substance: SODIUM BICARBONATE
  30. SODIUM CHLORIDE [Concomitant]
     Active Substance: SODIUM CHLORIDE
     Route: 055
  31. TOBRAMYCIN [Concomitant]
     Active Substance: TOBRAMYCIN
     Route: 055

REACTIONS (2)
  - Infective pulmonary exacerbation of cystic fibrosis [Unknown]
  - Gynaecomastia [Recovered/Resolved]

NARRATIVE: CASE EVENT DATE: 20220822
